FAERS Safety Report 6163908-5 (Version None)
Quarter: 2009Q2

REPORT INFORMATION
  Report Type: 
  Country: None (occurrence: None)
  Receive Date: 20090420
  Receipt Date: 20090409
  Transmission Date: 20091009
  Serious: Yes (Hospitalization)
  Sender: FDA-Public Use
  Company Number: GXKR2009BE04524

PATIENT
  Age: 54 Year
  Sex: Female

DRUGS (7)
  1. WARFARIN SODIUM [Suspect]
     Indication: ANTICOAGULANT THERAPY
     Dosage: ORAL
     Route: 048
  2. AMIODARONE HCL [Concomitant]
  3. ATORVASTATIN CALCIUM [Concomitant]
  4. LISINOPRIL [Concomitant]
  5. CARVEDILOL [Concomitant]
  6. SPIRONOLACTONE [Concomitant]
  7. ALLOPURINOL [Concomitant]

REACTIONS (5)
  - CALCIPHYLAXIS [None]
  - PROTEUS INFECTION [None]
  - PURPURA [None]
  - STENOTROPHOMONAS INFECTION [None]
  - WOUND INFECTION STAPHYLOCOCCAL [None]
